FAERS Safety Report 17640264 (Version 1)
Quarter: 2020Q2

REPORT INFORMATION
  Report Type: Spontaneous
  Country: US (occurrence: US)
  Receive Date: 20200408
  Receipt Date: 20200408
  Transmission Date: 20200713
  Serious: No
  Sender: FDA-Public Use
  Company Number: US-CEDIPROF, INC.-2082456

PATIENT
  Age: 70 Year
  Sex: Female

DRUGS (8)
  1. IMURAN [Suspect]
     Active Substance: AZATHIOPRINE
  2. GOLIMUMAB [Suspect]
     Active Substance: GOLIMUMAB
  3. XELJANZ XR [Suspect]
     Active Substance: TOFACITINIB CITRATE
  4. METHOTREXATE. [Suspect]
     Active Substance: METHOTREXATE
  5. LEVO-T [Suspect]
     Active Substance: LEVOTHYROXINE SODIUM
     Indication: AUTOIMMUNE THYROIDITIS
  6. HUMIRA [Suspect]
     Active Substance: ADALIMUMAB
  7. CYCLOSPORINE. [Suspect]
     Active Substance: CYCLOSPORINE
  8. PREDNISOLONE. [Concomitant]
     Active Substance: PREDNISOLONE

REACTIONS (2)
  - Somnolence [Unknown]
  - Drug ineffective [Unknown]
